FAERS Safety Report 4755419-6 (Version None)
Quarter: 2005Q3

REPORT INFORMATION
  Report Type: 
  Country: None (occurrence: None)
  Receive Date: 20050826
  Receipt Date: 20050826
  Transmission Date: 20060218
  Serious: Yes (Life-Threatening, Hospitalization)
  Sender: FDA-Public Use
  Company Number: None

PATIENT
  Age: 72 Year
  Sex: Male
  Weight: 121 kg

DRUGS (1)
  1. CLOPIDOGREL [Suspect]
     Indication: STENT PLACEMENT
     Dosage: 75 MG PO QD
     Route: 048
     Dates: start: 20050630, end: 20050730

REACTIONS (4)
  - ACUTE MYOCARDIAL INFARCTION [None]
  - CONFUSIONAL STATE [None]
  - HYPOTENSION [None]
  - RESPIRATORY FAILURE [None]
